FAERS Safety Report 9800985 (Version 2)
Quarter: 2014Q1

REPORT INFORMATION
  Report Type: Spontaneous
  Country: US (occurrence: US)
  Receive Date: 20140107
  Receipt Date: 20140217
  Transmission Date: 20141002
  Serious: Yes (Death, Other)
  Sender: FDA-Public Use
  Company Number: US-ASTELLAS-2014US000054

PATIENT
  Age: 76 Year
  Sex: Male

DRUGS (4)
  1. XTANDI [Suspect]
     Indication: PROSTATE CANCER
     Dosage: 160 MG, UID/QD
     Route: 048
     Dates: start: 20131007, end: 2013
  2. PREDNISONE [Concomitant]
     Indication: PRODUCT USED FOR UNKNOWN INDICATION
     Dosage: UNK
     Route: 065
  3. DIOVAN [Concomitant]
     Indication: PRODUCT USED FOR UNKNOWN INDICATION
     Dosage: 160 MG, BID
     Route: 048
  4. COREG [Concomitant]
     Indication: PRODUCT USED FOR UNKNOWN INDICATION
     Dosage: 40 MG, UID/QD
     Route: 048

REACTIONS (17)
  - Death [Fatal]
  - Adenocarcinoma pancreas [Unknown]
  - Prostatic specific antigen increased [Unknown]
  - Cardiac murmur [Unknown]
  - Urine flow decreased [Unknown]
  - Temperature intolerance [Unknown]
  - Joint swelling [Unknown]
  - Hypoacusis [Unknown]
  - Decreased appetite [Unknown]
  - Constipation [Unknown]
  - Fatigue [Unknown]
  - Paraesthesia [Unknown]
  - Hypoaesthesia [Unknown]
  - Weight decreased [Unknown]
  - Muscular weakness [Unknown]
  - Oedema peripheral [Unknown]
  - Arthralgia [Unknown]
